FAERS Safety Report 12341920 (Version 4)
Quarter: 2016Q3

REPORT INFORMATION
  Report Type: Report from Study
  Country: US (occurrence: US)
  Receive Date: 20160506
  Receipt Date: 20160713
  Transmission Date: 20161109
  Serious: Yes (Hospitalization)
  Sender: FDA-Public Use
  Company Number: PHEH2016US010910

PATIENT
  Age: 58 Year
  Sex: Female
  Weight: 85 kg

DRUGS (1)
  1. GILENYA [Suspect]
     Active Substance: FINGOLIMOD HYDROCHLORIDE
     Indication: MULTIPLE SCLEROSIS
     Dosage: 0.5 MG, QD
     Route: 048
     Dates: start: 20160309, end: 20160425

REACTIONS (3)
  - Acute myocardial infarction [Recovered/Resolved]
  - Angina pectoris [Unknown]
  - Nodal rhythm [Recovered/Resolved]

NARRATIVE: CASE EVENT DATE: 20160425
